FAERS Safety Report 4558870-2 (Version None)
Quarter: 2005Q1

REPORT INFORMATION
  Report Type: 
  Country: None (occurrence: None)
  Receive Date: 20050121
  Receipt Date: 20041005
  Transmission Date: 20050727
  Serious: Yes (Other)
  Sender: FDA-Public Use
  Company Number: US-MERCK-0410USA00802

PATIENT
  Age: 67 Year
  Sex: Female
  Weight: 98 kg

DRUGS (10)
  1. ZOCOR [Suspect]
     Indication: DYSLIPIDAEMIA
     Route: 048
     Dates: start: 20030901, end: 20041006
  2. ZOCOR [Suspect]
     Indication: BLOOD CHOLESTEROL INCREASED
     Route: 048
     Dates: start: 20030901, end: 20041006
  3. INSULIN [Concomitant]
     Route: 065
  4. FLONASE [Concomitant]
     Route: 065
  5. ALBUTEROL [Concomitant]
     Route: 055
  6. PROTONIX [Concomitant]
     Route: 065
  7. AMITRIPTYLINE HYDROCHLORIDE [Concomitant]
     Route: 065
  8. DILTIAZEM HYDROCHLORIDE [Suspect]
     Route: 065
  9. AVANDIA [Concomitant]
     Route: 065
  10. GLIPIZIDE [Concomitant]
     Route: 065

REACTIONS (3)
  - ASPARTATE AMINOTRANSFERASE INCREASED [None]
  - BLOOD ALKALINE PHOSPHATASE INCREASED [None]
  - DRUG INTERACTION [None]
